FAERS Safety Report 7290792-9 (Version None)
Quarter: 2011Q1

REPORT INFORMATION
  Report Type: 
  Country: None (occurrence: None)
  Receive Date: 20110214
  Receipt Date: 20110204
  Transmission Date: 20110831
  Serious: Yes (Hospitalization)
  Sender: FDA-Public Use
  Company Number: ES-MPIJNJ-2011-00227

PATIENT

DRUGS (3)
  1. VELCADE [Suspect]
     Dosage: 1.9 UNK, UNK
     Route: 042
     Dates: start: 20110118, end: 20110121
  2. DEXAMETHASONE [Suspect]
     Indication: MULTIPLE MYELOMA
     Dosage: 40 MG, CYCLIC
     Route: 048
     Dates: start: 20101228, end: 20110121
  3. VELCADE [Suspect]
     Indication: MULTIPLE MYELOMA
     Dosage: 2.4 MG, CYCLIC
     Route: 042
     Dates: start: 20101228, end: 20110107

REACTIONS (2)
  - H1N1 INFLUENZA [None]
  - CONSTIPATION [None]
